FAERS Safety Report 15108559 (Version 1)
Quarter: 2018Q3

REPORT INFORMATION
  Report Type: Spontaneous
  Country: US (occurrence: US)
  Receive Date: 20180705
  Receipt Date: 20180705
  Transmission Date: 20181010
  Serious: No
  Sender: FDA-Public Use
  Company Number: US-BIOGEN-2018BI00509040

PATIENT
  Sex: Female

DRUGS (1)
  1. TYSABRI [Suspect]
     Active Substance: NATALIZUMAB
     Indication: MULTIPLE SCLEROSIS
     Dosage: INFUSED OVER 1 HOUR
     Route: 042
     Dates: start: 20131211

REACTIONS (6)
  - Multiple sclerosis [Unknown]
  - Memory impairment [Unknown]
  - Herpes virus infection [Unknown]
  - Migraine [Unknown]
  - Amnesia [Unknown]
  - Pain in extremity [Unknown]
